FAERS Safety Report 19150659 (Version 3)
Quarter: 2021Q2

REPORT INFORMATION
  Report Type: Spontaneous
  Country: AR (occurrence: AR)
  Receive Date: 20210418
  Receipt Date: 20210530
  Transmission Date: 20210717
  Serious: Yes (Other)
  Sender: FDA-Public Use
  Company Number: AR-AMGEN-ARGSP2021058279

PATIENT
  Age: 79 Year
  Sex: Male

DRUGS (1)
  1. ENBREL [Suspect]
     Active Substance: ETANERCEPT
     Indication: ANKYLOSING SPONDYLITIS
     Dosage: 50 MILLIGRAM, QWK
     Route: 065
     Dates: start: 20190124

REACTIONS (2)
  - Blindness [Unknown]
  - Cataract [Unknown]
